FAERS Safety Report 7028554-X (Version None)
Quarter: 2010Q4

REPORT INFORMATION
  Report Type: 
  Country: None (occurrence: None)
  Receive Date: 20101005
  Receipt Date: 20100923
  Transmission Date: 20110411
  Serious: Yes (Hospitalization)
  Sender: FDA-Public Use
  Company Number: US-US-EMD SERONO, INC.-7016360

PATIENT
  Sex: Female
  Weight: 50 kg

DRUGS (55)
  1. CLADRIBINE [Suspect]
     Indication: MULTIPLE SCLEROSIS
     Route: 048
     Dates: start: 20071015, end: 20071019
  2. CLADRIBINE [Suspect]
     Route: 048
     Dates: start: 20071112, end: 20071116
  3. CLADRIBINE [Suspect]
     Route: 048
     Dates: start: 20071213, end: 20071217
  4. CLADRIBINE [Suspect]
     Route: 048
     Dates: start: 20080110, end: 20080114
  5. CLADRIBINE [Suspect]
     Route: 048
     Dates: start: 20080910, end: 20080914
  6. CLADRIBINE [Suspect]
     Route: 048
     Dates: start: 20081010, end: 20081014
  7. REBIF [Suspect]
     Indication: MULTIPLE SCLEROSIS
     Dates: start: 20021028, end: 20071012
  8. REBIF [Suspect]
     Dates: start: 20071015, end: 20090810
  9. COLACE [Concomitant]
     Indication: CONSTIPATION
     Dates: start: 19900101
  10. PRED FORTE [Concomitant]
     Indication: EYE INFLAMMATION
     Dosage: 1 DROP
     Route: 031
     Dates: start: 19920101
  11. PROZAC [Concomitant]
     Indication: DEPRESSION
     Dates: start: 20000101
  12. ALBUTEROL INHALER [Concomitant]
     Indication: CHRONIC OBSTRUCTIVE PULMONARY DISEASE
     Route: 055
     Dates: start: 20000101
  13. ADVAIR DISKUS 500/50 [Concomitant]
     Indication: CHRONIC OBSTRUCTIVE PULMONARY DISEASE
     Dosage: 500/50 1 PUFF
     Route: 055
     Dates: start: 20000101
  14. ZANTAC [Concomitant]
     Indication: DYSPEPSIA
     Dates: start: 20020101
  15. ALEVE (CAPLET) [Concomitant]
     Indication: INFLUENZA LIKE ILLNESS
     Dates: start: 20020101, end: 20090810
  16. ALEVE (CAPLET) [Concomitant]
     Indication: PAIN
  17. BACLOFEN [Concomitant]
     Indication: MUSCLE SPASMS
  18. BACLOFEN [Concomitant]
     Route: 048
     Dates: start: 20020101, end: 20090223
  19. BACLOFEN [Concomitant]
     Route: 048
     Dates: start: 20090223, end: 20090315
  20. BACLOFEN [Concomitant]
     Route: 048
     Dates: start: 20090316
  21. NEURONTIN [Concomitant]
     Indication: PAIN
     Dates: start: 20020101, end: 20080106
  22. NEURONTIN [Concomitant]
     Dates: start: 20030807, end: 20070930
  23. NEURONTIN [Concomitant]
     Dates: start: 20080107
  24. NEXIUM [Concomitant]
     Indication: PROPHYLAXIS
     Dates: start: 20030807, end: 20070930
  25. NASONEX [Concomitant]
     Indication: SEASONAL ALLERGY
     Dosage: 2 SPRAYS
     Dates: start: 20040101
  26. SPIRIVA [Concomitant]
     Indication: CHRONIC OBSTRUCTIVE PULMONARY DISEASE
     Dosage: 1 PUFF
     Dates: start: 20050101
  27. LEVAQUIN [Concomitant]
     Indication: PRODUCTIVE COUGH
     Route: 048
     Dates: start: 20080818, end: 20080822
  28. LEVAQUIN [Concomitant]
     Indication: INCREASED UPPER AIRWAY SECRETION
  29. SEASONAL FLU VACCINE [Concomitant]
     Indication: ANTIVIRAL PROPHYLAXIS
     Dosage: 1 SHOT
     Route: 030
     Dates: start: 20071207, end: 20071207
  30. SEASONAL FLU VACCINE [Concomitant]
     Route: 030
     Dates: start: 20091003, end: 20091003
  31. FACTINE [Concomitant]
     Indication: BRONCHITIS
     Dates: start: 20080112, end: 20080118
  32. CIPRO [Concomitant]
     Indication: URINARY TRACT INFECTION
     Dates: start: 20080125, end: 20080128
  33. CEFDINIR [Concomitant]
     Indication: OROPHARYNGEAL PAIN
     Dates: start: 20080521, end: 20080531
  34. CEFDINIR [Concomitant]
     Indication: NASOPHARYNGITIS
     Dates: start: 20100124, end: 20100204
  35. AUGMENTIN '125' [Concomitant]
     Indication: OROPHARYNGEAL PAIN
     Route: 048
     Dates: start: 20080626, end: 20080717
  36. AUGMENTIN '125' [Concomitant]
     Indication: CYST
     Dosage: 2 TSP
     Dates: start: 20080926, end: 20080930
  37. AUGMENTIN '125' [Concomitant]
     Indication: INFECTION PROPHYLAXIS
  38. DIFLUCAN [Concomitant]
     Indication: INFECTION PROPHYLAXIS
     Route: 048
     Dates: start: 20080627, end: 20080711
  39. SOLU-MEDROL [Concomitant]
     Indication: MULTIPLE SCLEROSIS RELAPSE
     Route: 042
     Dates: start: 20080814, end: 20080817
  40. SOLU-MEDROL [Concomitant]
     Route: 042
     Dates: start: 20100416, end: 20100418
  41. SOLU-MEDROL [Concomitant]
     Route: 042
     Dates: start: 20080812, end: 20080812
  42. OMEPRAZOLE [Concomitant]
     Indication: CHOKING SENSATION
     Route: 048
     Dates: start: 20081125, end: 20100215
  43. OMEPRAZOLE [Concomitant]
     Indication: GASTROOESOPHAGEAL REFLUX DISEASE
  44. FLUCONAZOLE [Concomitant]
     Indication: FUNGAL INFECTION
     Route: 048
     Dates: start: 20081208, end: 20081221
  45. NYSTATIN [Concomitant]
     Indication: FUNGAL INFECTION
     Dosage: 2 TSP
     Route: 048
     Dates: start: 20081223, end: 20090129
  46. BONIVA [Concomitant]
     Indication: OSTEOPOROSIS PROPHYLAXIS
     Route: 048
     Dates: start: 20091117
  47. MUCINEX [Concomitant]
     Indication: NASOPHARYNGITIS
     Route: 048
     Dates: start: 20100122, end: 20100128
  48. LIDOCAINE [Concomitant]
     Indication: OTOPLASTY
     Dates: start: 20100322, end: 20100322
  49. LIDOCAINE [Concomitant]
     Dosage: 2.5 CC
     Dates: start: 20100301, end: 20100301
  50. LIDOCAINE [Concomitant]
     Dosage: 1 CC
     Dates: start: 20100301, end: 20100301
  51. LIDOCAINE EPINEPHRINE-TETRACAINE [Concomitant]
     Indication: MICROGRAPHIC SKIN SURGERY
     Dates: start: 20100301, end: 20100301
  52. TYLENOL E.S. [Concomitant]
     Indication: EAR PAIN
     Route: 048
     Dates: start: 20100301, end: 20100302
  53. TYLENOL E.S. [Concomitant]
     Route: 048
     Dates: start: 20100322, end: 20100323
  54. ZYRTEC [Concomitant]
     Indication: SEASONAL ALLERGY
     Route: 048
     Dates: start: 20100406
  55. KEFLEX [Concomitant]
     Indication: MICROGRAPHIC SKIN SURGERY
     Route: 048
     Dates: start: 20100301, end: 20100301

REACTIONS (2)
  - HYPOXIA [None]
  - PNEUMONIA [None]
